FAERS Safety Report 13457705 (Version 13)
Quarter: 2021Q1

REPORT INFORMATION
  Report Type: Spontaneous
  Country: US (occurrence: US)
  Receive Date: 20170419
  Receipt Date: 20210301
  Transmission Date: 20210419
  Serious: Yes (Hospitalization, Other)
  Sender: FDA-Public Use
  Company Number: US-PFIZER INC-2017169557

PATIENT
  Age: 64 Year
  Sex: Female
  Weight: 74 kg

DRUGS (5)
  1. XELJANZ [Suspect]
     Active Substance: TOFACITINIB CITRATE
     Indication: OSTEOARTHRITIS
     Dosage: 5 MG, 2X/DAY
     Route: 048
     Dates: start: 201806
  2. XELJANZ [Suspect]
     Active Substance: TOFACITINIB CITRATE
     Dosage: 5 MG, 2X/DAY (ONCE IN THE MORNING AND ONCE AT NIGHT)
     Route: 048
  3. DICLOFEN [Concomitant]
     Active Substance: DICLOFENAC SODIUM
     Indication: INFLAMMATION
  4. XELJANZ [Suspect]
     Active Substance: TOFACITINIB CITRATE
     Indication: RHEUMATOID ARTHRITIS
     Dosage: 5 MG, 2X/DAY
     Route: 048
     Dates: end: 201806
  5. DICLOFEN [Concomitant]
     Active Substance: DICLOFENAC SODIUM
     Indication: PAIN
     Dosage: 75 MG, 2X/DAY

REACTIONS (16)
  - Back injury [Unknown]
  - Muscle injury [Unknown]
  - Fall [Unknown]
  - Contusion [Unknown]
  - Blood cholesterol abnormal [Unknown]
  - Pain in extremity [Unknown]
  - Back pain [Unknown]
  - Spinal pain [Unknown]
  - Hernia [Recovering/Resolving]
  - Pneumonia [Unknown]
  - Drug ineffective [Unknown]
  - Spinal fracture [Unknown]
  - Gait disturbance [Unknown]
  - Fatigue [Unknown]
  - Condition aggravated [Unknown]
  - Pain [Unknown]
